FAERS Safety Report 6473219-6 (Version None)
Quarter: 2009Q4

REPORT INFORMATION
  Report Type: 
  Country: None (occurrence: None)
  Receive Date: 20091204
  Receipt Date: 20080625
  Transmission Date: 20100525
  Serious: Yes (Hospitalization)
  Sender: FDA-Public Use
  Company Number: FR-ELI_LILLY_AND_COMPANY-FR200805004291

PATIENT
  Age: 75 Year
  Sex: Male

DRUGS (4)
  1. CYMBALTA [Suspect]
     Indication: DEPRESSION
     Dosage: 60 MG, DAILY (1/D)
     Route: 048
     Dates: start: 20080604, end: 20080607
  2. PRAZEPAM [Concomitant]
     Dosage: 30 MG, DAILY (1/D)
     Route: 048
  3. TERALITHE [Concomitant]
     Dosage: 125 MG, DAILY (1/D)
     Route: 048
  4. STILNOX [Concomitant]
     Dosage: UNK, UNKNOWN
     Route: 048

REACTIONS (1)
  - TRANSIENT ISCHAEMIC ATTACK [None]
